FAERS Safety Report 5658002-3 (Version None)
Quarter: 2008Q1

REPORT INFORMATION
  Report Type: 
  Country: None (occurrence: None)
  Receive Date: 20080306
  Receipt Date: 20080220
  Transmission Date: 20080703
  Serious: Yes (Hospitalization)
  Sender: FDA-Public Use
  Company Number: 2008S1002786

PATIENT
  Age: 12 Year
  Sex: Male

DRUGS (4)
  1. AMNESTEEM [Suspect]
     Indication: ACNE
     Dosage: 20 MG; EVERY MORNING; ORAL; 40 MG; AT BEDTIME; ORAL
     Route: 048
     Dates: start: 20071008, end: 20080220
  2. AMNESTEEM [Suspect]
     Indication: ACNE
     Dosage: 20 MG; EVERY MORNING; ORAL; 40 MG; AT BEDTIME; ORAL
     Route: 048
     Dates: start: 20071008, end: 20080220
  3. CELEXA [Concomitant]
  4. ADDERALL 10 [Concomitant]

REACTIONS (2)
  - DEPRESSION [None]
  - INTENTIONAL SELF-INJURY [None]
